FAERS Safety Report 17121482 (Version 1)
Quarter: 2019Q4

REPORT INFORMATION
  Report Type: Spontaneous
  Country: FR (occurrence: FR)
  Receive Date: 20191206
  Receipt Date: 20191206
  Transmission Date: 20200122
  Serious: Yes (Life-Threatening, Other)
  Sender: FDA-Public Use
  Company Number: FR-GLAXOSMITHKLINE-FR2019219809

PATIENT
  Age: 44 Year
  Sex: Female
  Weight: 79 kg

DRUGS (5)
  1. LAMICTAL [Suspect]
     Active Substance: LAMOTRIGINE
     Indication: TOXICITY TO VARIOUS AGENTS
     Dosage: 30 DF
     Route: 048
     Dates: start: 20191121, end: 20191121
  2. QUETIAPINE. [Suspect]
     Active Substance: QUETIAPINE
     Indication: TOXICITY TO VARIOUS AGENTS
     Dosage: 10 DF
     Route: 048
     Dates: start: 20191121, end: 20191121
  3. EFFEXOR [Suspect]
     Active Substance: VENLAFAXINE HYDROCHLORIDE
     Indication: TOXICITY TO VARIOUS AGENTS
     Dosage: 1 DF
     Dates: start: 20191121, end: 20191121
  4. VALIUM [Suspect]
     Active Substance: DIAZEPAM
     Indication: TOXICITY TO VARIOUS AGENTS
     Dosage: 13 DF
     Route: 048
     Dates: start: 20191121, end: 20191121
  5. LOXAPAC [Suspect]
     Active Substance: LOXAPINE
     Indication: TOXICITY TO VARIOUS AGENTS
     Dosage: 5 DF
     Route: 048
     Dates: start: 20191121, end: 20191121

REACTIONS (4)
  - Coma [Recovered/Resolved]
  - Hypothermia [Recovered/Resolved]
  - Tachypnoea [Recovered/Resolved]
  - Hypotension [Recovered/Resolved]

NARRATIVE: CASE EVENT DATE: 20191121
